FAERS Safety Report 22116065 (Version 2)
Quarter: 2023Q4

REPORT INFORMATION
  Report Type: Spontaneous
  Country: DE (occurrence: DE)
  Receive Date: 20230320
  Receipt Date: 20231120
  Transmission Date: 20240110
  Serious: Yes (Other)
  Sender: FDA-Public Use
  Company Number: None

PATIENT
  Age: 35 Year
  Sex: Male
  Weight: 61 kg

DRUGS (32)
  1. LACOSAMIDE [Suspect]
     Active Substance: LACOSAMIDE
     Indication: Product used for unknown indication
     Dosage: UNK
  2. LEVETIRACETAM [Suspect]
     Active Substance: LEVETIRACETAM
     Indication: Product used for unknown indication
     Dosage: UNK
  3. LAMOTRIGINE [Suspect]
     Active Substance: LAMOTRIGINE
     Indication: Product used for unknown indication
     Dosage: UNK, 25-25: (NOW ALWAYS ONE WEEK)
  4. LAMOTRIGINE [Suspect]
     Active Substance: LAMOTRIGINE
     Dosage: UNK, 25-50
  5. LAMOTRIGINE [Suspect]
     Active Substance: LAMOTRIGINE
     Dosage: UNK, 0-25: (2WEEKS)
     Dates: start: 2021
  6. LAMOTRIGINE [Suspect]
     Active Substance: LAMOTRIGINE
     Dosage: UNK, 50-50 FOR 2 WEEKS
  7. LAMOTRIGINE [Suspect]
     Active Substance: LAMOTRIGINE
     Dosage: UNK, 50-50
  8. LAMOTRIGINE [Suspect]
     Active Substance: LAMOTRIGINE
     Dosage: UNK, Q2D, FOURTH WEEK: 50-25
  9. LAMOTRIGINE [Suspect]
     Active Substance: LAMOTRIGINE
     Dosage: NINTH WEEK: FURTHER REDUCED TO 25-25
  10. LAMOTRIGINE [Suspect]
     Active Substance: LAMOTRIGINE
     Dosage: UNK, Q2D,THIRD WEEK: 25-25
     Dates: start: 20210521
  11. LAMOTRIGINE [Suspect]
     Active Substance: LAMOTRIGINE
     Dosage: UNK, QD, FIRST 2 WEEKS: 25-0
     Dates: start: 20210521
  12. LAMOTRIGINE [Suspect]
     Active Substance: LAMOTRIGINE
     Dosage: UNK, QD,10TH AND 11THWEEK: 25-0
  13. LAMOTRIGINE [Suspect]
     Active Substance: LAMOTRIGINE
     Dosage: UNK,Q2D,8THWK: DOSED DOWN TO 50-25
  14. LAMOTRIGINE [Suspect]
     Active Substance: LAMOTRIGINE
     Dosage: UNK,Q2D,7THWK: CONTINUED TO KEEP THE LEVEL 50-50
  15. LAMOTRIGINE [Suspect]
     Active Substance: LAMOTRIGINE
     Dosage: UNK,Q2D,5THWEEK: 50-50;6TH WEEK:STILL 50-50
  16. LAMOTRIGINE [Suspect]
     Active Substance: LAMOTRIGINE
     Dosage: UNK, Q2D,9THWK:FURTHER REDUCED TO 25-25
  17. PRIMIDONE [Suspect]
     Active Substance: PRIMIDONE
     Indication: Product used for unknown indication
     Dosage: 750-750
  18. PRIMIDONE [Suspect]
     Active Substance: PRIMIDONE
     Dosage: 50-50
  19. PRIMIDONE [Suspect]
     Active Substance: PRIMIDONE
     Dosage: 150-150
  20. PRIMIDONE [Suspect]
     Active Substance: PRIMIDONE
     Dosage: 250-250
  21. PRIMIDONE [Suspect]
     Active Substance: PRIMIDONE
     Dosage: 500-500
  22. PRIMIDONE [Suspect]
     Active Substance: PRIMIDONE
     Dosage: 0-62.5
  23. PRIMIDONE [Suspect]
     Active Substance: PRIMIDONE
     Dosage: 100-100
  24. PRIMIDONE [Suspect]
     Active Substance: PRIMIDONE
     Dosage: 62.5-62.5
  25. LEVETIRACETAM [Suspect]
     Active Substance: LEVETIRACETAM
     Indication: Product used for unknown indication
     Dosage: 500-500
  26. VALPROATE [Suspect]
     Active Substance: VALPROIC ACID
     Indication: Product used for unknown indication
     Dosage: UNK
  27. VALPROIC ACID [Concomitant]
     Active Substance: VALPROIC ACID
     Indication: Product used for unknown indication
     Dosage: 300 MILLIGRAM
  28. VALPROIC ACID [Concomitant]
     Active Substance: VALPROIC ACID
     Dosage: 500 MILLIGRAM
  29. VALPROIC ACID [Concomitant]
     Active Substance: VALPROIC ACID
     Indication: Product used for unknown indication
     Dosage: UNK
  30. VALPROAT STADA [Concomitant]
     Indication: Product used for unknown indication
     Dosage: 750-750
  31. VALPROAT STADA [Concomitant]
     Dosage: 500-500
  32. VALPROAT STADA [Concomitant]
     Dosage: 250-250

REACTIONS (21)
  - Petit mal epilepsy [Unknown]
  - Umbilical haemorrhage [Unknown]
  - Epilepsy [Unknown]
  - Aggression [Recovering/Resolving]
  - Pain in extremity [Recovering/Resolving]
  - Hypersensitivity [Recovering/Resolving]
  - Subcutaneous abscess [Recovering/Resolving]
  - Loss of libido [Recovering/Resolving]
  - Pruritus [Recovering/Resolving]
  - Ingrown hair [Unknown]
  - Lip haemorrhage [Recovered/Resolved]
  - Axillary pain [Recovering/Resolving]
  - Lip injury [Unknown]
  - Weight decreased [Unknown]
  - Alopecia [Unknown]
  - Insomnia [Unknown]
  - Hypophagia [Unknown]
  - Muscle twitching [Unknown]
  - Tremor [Unknown]
  - Anger [Unknown]
  - Restlessness [Unknown]
